FAERS Safety Report 8792190 (Version 2)
Quarter: 2015Q1

REPORT INFORMATION
  Report Type: Report from Study
  Country: US (occurrence: US)
  Receive Date: 20120918
  Receipt Date: 20150325
  Transmission Date: 20150721
  Serious: Yes (Death, Other)
  Sender: FDA-Public Use
  Company Number: US-ROCHE-1126645

PATIENT
  Age: 48 Year
  Sex: Male

DRUGS (10)
  1. AVASTIN [Suspect]
     Active Substance: BEVACIZUMAB
     Route: 041
     Dates: start: 20061020
  2. DECADRON [Concomitant]
     Active Substance: DEXAMETHASONE
     Route: 042
  3. TARCEVA [Suspect]
     Active Substance: ERLOTINIB HYDROCHLORIDE
     Indication: PRODUCT USED FOR UNKNOWN INDICATION
     Route: 048
  4. KYTRIL [Concomitant]
     Active Substance: GRANISETRON HYDROCHLORIDE
     Route: 065
  5. AVASTIN [Suspect]
     Active Substance: BEVACIZUMAB
     Route: 041
     Dates: start: 20061103
  6. KEPPRA [Concomitant]
     Active Substance: LEVETIRACETAM
  7. AVASTIN [Suspect]
     Active Substance: BEVACIZUMAB
     Indication: BRAIN NEOPLASM MALIGNANT
     Route: 041
     Dates: start: 20061006
  8. CPT-11 [Concomitant]
     Active Substance: IRINOTECAN
     Route: 041
  9. SIROLIMUS. [Concomitant]
     Active Substance: SIROLIMUS
     Dosage: 6 MG LOADING DOSE
     Route: 065
  10. THORAZINE [Concomitant]
     Active Substance: CHLORPROMAZINE
     Indication: HICCUPS
     Route: 048

REACTIONS (9)
  - Balance disorder [Unknown]
  - Vision blurred [Unknown]
  - Constipation [Unknown]
  - Muscular weakness [Unknown]
  - Nausea [Unknown]
  - Weight decreased [Unknown]
  - Death [Fatal]
  - Fall [Unknown]
  - Cerebral haemorrhage [Unknown]

NARRATIVE: CASE EVENT DATE: 20061108
